FAERS Safety Report 7321815-6 (Version None)
Quarter: 2011Q1

REPORT INFORMATION
  Report Type: 
  Country: None (occurrence: None)
  Receive Date: 20110228
  Receipt Date: 20110221
  Transmission Date: 20110831
  Serious: Yes (Hospitalization)
  Sender: FDA-Public Use
  Company Number: US-US-EMD SERONO, INC.-233313J09USA

PATIENT
  Sex: Male

DRUGS (1)
  1. REBIF [Suspect]
     Indication: MULTIPLE SCLEROSIS
     Route: 058
     Dates: start: 20071120

REACTIONS (5)
  - JAW FRACTURE [None]
  - FACIAL BONES FRACTURE [None]
  - SKULL FRACTURE [None]
  - VISION BLURRED [None]
  - OPHTHALMOPLEGIA [None]
